FAERS Safety Report 8977070 (Version 1)
Quarter: 2012Q4

REPORT INFORMATION
  Report Type: 
  Country: MX (occurrence: MX)
  Receive Date: 20121220
  Receipt Date: 20121220
  Transmission Date: 20130627
  Serious: Yes (Death, Other)
  Sender: FDA-Public Use
  Company Number: MX-UCBSA-073212

PATIENT
  Age: 9 Month
  Sex: Female
  Weight: 6 kg

DRUGS (1)
  1. VIMPAT [Suspect]
     Indication: EPILEPSY
     Dosage: NUMBER OF DOSES RECEIVED: 10
     Route: 048
     Dates: start: 20121127, end: 20121201

REACTIONS (4)
  - Renal failure acute [Fatal]
  - Acute hepatic failure [Fatal]
  - Multi-organ failure [Fatal]
  - Cardio-respiratory arrest [Fatal]
